FAERS Safety Report 6278317-8 (Version None)
Quarter: 2009Q3

REPORT INFORMATION
  Report Type: 
  Country: None (occurrence: None)
  Receive Date: 20090722
  Receipt Date: 20090715
  Transmission Date: 20100115
  Serious: Yes (Other)
  Sender: FDA-Public Use
  Company Number: BR-ASTRAZENECA-2009UW06071

PATIENT
  Age: 27 Year
  Sex: Female

DRUGS (1)
  1. BUDECORT AQUA [Suspect]
     Indication: RHINITIS
     Route: 045
     Dates: start: 20090203, end: 20090203

REACTIONS (7)
  - ASTHENIA [None]
  - CHEST PAIN [None]
  - DRUG EXPOSURE DURING PREGNANCY [None]
  - DYSPNOEA [None]
  - SWELLING FACE [None]
  - SYNCOPE [None]
  - URINARY TRACT INFECTION [None]
